FAERS Safety Report 23365859 (Version 4)
Quarter: 2024Q2

REPORT INFORMATION
  Report Type: Spontaneous
  Country: DE (occurrence: DE)
  Receive Date: 20240104
  Receipt Date: 20240416
  Transmission Date: 20240716
  Serious: Yes (Hospitalization, Other)
  Sender: FDA-Public Use
  Company Number: None

PATIENT
  Age: 37 Year
  Sex: Female

DRUGS (32)
  1. QUETIAPINE [Suspect]
     Active Substance: QUETIAPINE
     Indication: Product used for unknown indication
     Dosage: 400 MG, QD
     Route: 048
     Dates: start: 2014, end: 2015
  2. QUETIAPINE [Suspect]
     Active Substance: QUETIAPINE
     Dosage: 600 MG, QD
     Route: 048
     Dates: start: 2015
  3. QUETIAPINE [Suspect]
     Active Substance: QUETIAPINE
     Dosage: 450 MILLIGRAM
     Route: 065
     Dates: start: 202007
  4. QUETIAPINE [Suspect]
     Active Substance: QUETIAPINE
     Dosage: 300 MILLIGRAM
     Route: 065
     Dates: start: 202305
  5. QUETIAPINE [Suspect]
     Active Substance: QUETIAPINE
     Dosage: 400 MG
     Route: 065
     Dates: start: 202309
  6. QUETIAPINE [Suspect]
     Active Substance: QUETIAPINE
     Dosage: 750 MG
     Route: 065
     Dates: start: 201507
  7. QUETIAPINE [Suspect]
     Active Substance: QUETIAPINE
     Dosage: 225 MG
     Route: 065
     Dates: start: 201909
  8. QUETIAPINE [Suspect]
     Active Substance: QUETIAPINE
     Dosage: 300 MG
     Route: 065
     Dates: start: 202007
  9. QUETIAPINE [Suspect]
     Active Substance: QUETIAPINE
     Dosage: 400 MG
     Route: 065
     Dates: start: 201909
  10. QUETIAPINE [Suspect]
     Active Substance: QUETIAPINE
     Dosage: 500 MG
     Route: 065
     Dates: start: 202012
  11. QUETIAPINE [Suspect]
     Active Substance: QUETIAPINE
     Dosage: 200 MG
     Route: 065
     Dates: start: 202305
  12. QUETIAPINE [Suspect]
     Active Substance: QUETIAPINE
     Dosage: 200 MG
     Route: 065
     Dates: start: 202309
  13. METFORMIN [Suspect]
     Active Substance: METFORMIN HYDROCHLORIDE
     Indication: Product used for unknown indication
     Dosage: 1000 MILLIGRAM, QD (USE FOR A LONG TIME)
     Route: 048
  14. ARIPIPRAZOLE [Suspect]
     Active Substance: ARIPIPRAZOLE
     Indication: Schizoaffective disorder
     Dosage: 5 MILLIGRAM, QD
     Route: 048
     Dates: start: 20230821, end: 20230824
  15. ARIPIPRAZOLE [Suspect]
     Active Substance: ARIPIPRAZOLE
     Indication: Schizoaffective disorder
     Dosage: 10 MILLIGRAM, QD
     Route: 048
     Dates: start: 20230825, end: 20230830
  16. ARIPIPRAZOLE [Suspect]
     Active Substance: ARIPIPRAZOLE
     Dosage: 15 MG, QD
     Route: 048
     Dates: start: 20230831
  17. ARIPIPRAZOLE [Suspect]
     Active Substance: ARIPIPRAZOLE
     Dosage: 15 MG
     Route: 065
     Dates: start: 202309
  18. RAMIPRIL [Suspect]
     Active Substance: RAMIPRIL
     Indication: Product used for unknown indication
     Dosage: 2.5 MILLIGRAM, QD (USE FOR A LONG TIME)
     Route: 048
  19. RISPERDAL [Suspect]
     Active Substance: RISPERIDONE
     Indication: Product used for unknown indication
     Dosage: 2 MILLIGRAM
     Route: 048
     Dates: start: 20230301, end: 20230815
  20. RISPERDAL [Suspect]
     Active Substance: RISPERIDONE
     Dosage: 1.5 MILLIGRAM
     Route: 048
     Dates: start: 20230816, end: 20230817
  21. RISPERDAL [Suspect]
     Active Substance: RISPERIDONE
     Dosage: 1 MILLIGRAM
     Route: 048
     Dates: start: 20230818, end: 20230823
  22. RISPERDAL [Suspect]
     Active Substance: RISPERIDONE
     Dosage: 0.5 MILLIGRAM
     Route: 048
     Dates: start: 20230824, end: 20230825
  23. RAMIPRIL [Concomitant]
     Active Substance: RAMIPRIL
     Indication: Product used for unknown indication
     Dosage: 2.5 MG
     Route: 065
     Dates: start: 202309
  24. RAMIPRIL [Concomitant]
     Active Substance: RAMIPRIL
     Dosage: 2.5 MILLIGRAM, QD
     Route: 048
     Dates: start: 202305
  25. RAMIPRIL [Concomitant]
     Active Substance: RAMIPRIL
     Dosage: 1.25 MILLIGRAM
     Route: 065
     Dates: start: 202012
  26. RAMIPRIL [Concomitant]
     Active Substance: RAMIPRIL
     Dosage: 1.25 MILLIGRAM
     Route: 065
     Dates: start: 201909
  27. DARIDOREXANT [Concomitant]
     Active Substance: DARIDOREXANT
     Indication: Product used for unknown indication
     Dosage: 25 MILLIGRAM
     Route: 065
     Dates: start: 202309
  28. SERTRALINE HYDROCHLORIDE [Concomitant]
     Active Substance: SERTRALINE HYDROCHLORIDE
     Indication: Product used for unknown indication
     Dosage: 75 MILLIGRAM
     Route: 065
     Dates: start: 202007
  29. BUPROPION [Concomitant]
     Active Substance: BUPROPION
     Indication: Product used for unknown indication
     Dosage: 150 MILLIGRAM
     Route: 065
     Dates: start: 201909
  30. BUPROPION [Concomitant]
     Active Substance: BUPROPION
     Dosage: 300 MILLIGRAM
     Route: 065
     Dates: start: 201507
  31. METFORMIN [Concomitant]
     Active Substance: METFORMIN HYDROCHLORIDE
     Indication: Product used for unknown indication
     Dosage: 1000 MILLIGRAM, QD
     Route: 048
     Dates: start: 202305
  32. METFORMIN [Concomitant]
     Active Substance: METFORMIN HYDROCHLORIDE
     Dosage: 1000 MILLIGRAM
     Route: 065
     Dates: start: 202309

REACTIONS (5)
  - Schizoaffective disorder [Unknown]
  - Galactorrhoea [Unknown]
  - Hyperprolactinaemia [Unknown]
  - Amenorrhoea [Unknown]
  - Product use in unapproved indication [Unknown]

NARRATIVE: CASE EVENT DATE: 20230501
